FAERS Safety Report 4868665-8 (Version None)
Quarter: 2005Q4

REPORT INFORMATION
  Report Type: 
  Country: None (occurrence: None)
  Receive Date: 20051223
  Receipt Date: 20051215
  Transmission Date: 20060501
  Serious: Yes (Other)
  Sender: FDA-Public Use
  Company Number: 2005137742

PATIENT
  Age: 17 Year
  Sex: Male

DRUGS (19)
  1. VFEND [Suspect]
     Indication: ANTIFUNGAL PROPHYLAXIS
     Dosage: 400 MG (200 MG, 1 IN 2 D), ORAL
     Route: 048
     Dates: start: 20050919
  2. CYTARABINE [Suspect]
     Indication: LYMPHOCYTIC LEUKAEMIA
     Dosage: 1000 MG/M*2 (FOR 5 DAYS), INTRAVENOUS
     Route: 042
     Dates: start: 20050919
  3. COD LIVER OIL (COD-LIVER OIL) [Concomitant]
  4. MAGNESIUM CITRATE (MAGNESIUM CITRATE) [Concomitant]
  5. MULTIVITAMIN [Concomitant]
  6. PENTAMIDINE (PENTAMIDINE) [Concomitant]
  7. IMMUNOGLOBULINS (IMMUNOGLOBULINS) [Concomitant]
  8. HYDROCORTISONE [Concomitant]
  9. ONDANSETRON [Concomitant]
  10. SCOPOLAMINE (HYOSCINE) [Concomitant]
  11. GLUTAMINE (LEVOGLUTAMIDE) [Concomitant]
  12. ACETAMINOPHEN [Concomitant]
  13. LIDOCAINE [Concomitant]
  14. DIPHENHYDRAMINE HCL [Concomitant]
  15. LORAZEPAM [Concomitant]
  16. MORPHINE [Concomitant]
  17. RANITIDINE HCL [Concomitant]
  18. MULTIVITAMIN AND MINIERAL SUPPLEMENT (MINERALS NOS, VITAMINS NOS) [Concomitant]
  19. VITAMIN C (VITAMIN C) [Concomitant]

REACTIONS (21)
  - BAND NEUTROPHIL COUNT INCREASED [None]
  - BLISTER [None]
  - BLOOD BLISTER [None]
  - BURNING SENSATION [None]
  - DRUG ERUPTION [None]
  - EOSINOPHIL COUNT INCREASED [None]
  - FULL BLOOD COUNT ABNORMAL [None]
  - HAEMORRHAGE [None]
  - HYPOGAMMAGLOBULINAEMIA [None]
  - LYMPHOCYTE COUNT DECREASED [None]
  - MONOCYTE COUNT INCREASED [None]
  - MUCOSAL INFLAMMATION [None]
  - NAUSEA [None]
  - NEUTROPENIA [None]
  - NEUTROPHIL COUNT INCREASED [None]
  - PAIN [None]
  - PLATELET COUNT DECREASED [None]
  - PYREXIA [None]
  - RASH PRURITIC [None]
  - SEPSIS [None]
  - SKIN EXFOLIATION [None]
